FAERS Safety Report 21401831 (Version 1)
Quarter: 2022Q3

REPORT INFORMATION
  Report Type: Spontaneous
  Country: US (occurrence: None)
  Receive Date: 20220930
  Receipt Date: 20220930
  Transmission Date: 20221027
  Serious: No
  Sender: FDA-Public Use
  Company Number: None

PATIENT
  Age: 15 Year
  Sex: Male

DRUGS (1)
  1. HUMIRA [Suspect]
     Active Substance: ADALIMUMAB
     Indication: Crohn^s disease
     Dosage: OTHER FREQUENCY : 160MG D1, 80MG D15;?
     Dates: start: 202208

REACTIONS (5)
  - Device malfunction [None]
  - Device defective [None]
  - Device leakage [None]
  - Drug dose omission by device [None]
  - Needle issue [None]

NARRATIVE: CASE EVENT DATE: 20220923
